FAERS Safety Report 14824859 (Version 1)
Quarter: 2018Q2

REPORT INFORMATION
  Report Type: Spontaneous
  Country: FR (occurrence: FR)
  Receive Date: 20180430
  Receipt Date: 20180430
  Transmission Date: 20180711
  Serious: Yes (Other)
  Sender: FDA-Public Use
  Company Number: PHHY2017FR202570

PATIENT
  Age: 48 Year
  Sex: Female

DRUGS (2)
  1. RENAGEL [Interacting]
     Active Substance: SEVELAMER HYDROCHLORIDE
     Indication: HYPERPHOSPHATAEMIA
     Dosage: UNK
     Route: 065
  2. TACROLIMUS. [Suspect]
     Active Substance: TACROLIMUS
     Indication: LIVER TRANSPLANT
     Dosage: UNK
     Route: 065

REACTIONS (6)
  - Hyperphosphataemia [Unknown]
  - Renal failure [Unknown]
  - Liver transplant rejection [Recovered/Resolved]
  - Hypocalcaemia [Unknown]
  - Diabetes mellitus [Recovered/Resolved]
  - Drug interaction [Unknown]

NARRATIVE: CASE EVENT DATE: 201702
